FAERS Safety Report 7830161-3 (Version None)
Quarter: 2011Q4

REPORT INFORMATION
  Report Type: 
  Country: None (occurrence: None)
  Receive Date: 20111021
  Receipt Date: 20111011
  Transmission Date: 20120403
  Serious: Yes (Hospitalization)
  Sender: FDA-Public Use
  Company Number: US-JNJFOC-20110906933

PATIENT
  Sex: Male
  Weight: 39.8 kg

DRUGS (5)
  1. REMICADE [Suspect]
     Route: 042
     Dates: start: 20110829
  2. REMICADE [Suspect]
     Route: 042
     Dates: start: 20071101, end: 20080730
  3. REMICADE [Suspect]
     Indication: CROHN'S DISEASE
     Route: 042
     Dates: start: 20110104
  4. MESALAMINE [Concomitant]
     Indication: CROHN'S DISEASE
     Route: 048
  5. ANTIBIOTICS [Concomitant]
     Indication: INFLAMMATORY BOWEL DISEASE
     Route: 048

REACTIONS (1)
  - PROCTALGIA [None]
